FAERS Safety Report 21241900 (Version 1)
Quarter: 2022Q3

REPORT INFORMATION
  Report Type: Other
  Country: FR (occurrence: FR)
  Receive Date: 20220823
  Receipt Date: 20220823
  Transmission Date: 20221027
  Serious: Yes (Death)
  Sender: FDA-Public Use
  Company Number: FR-IPSEN Group, Research and Development-2022-23531

PATIENT
  Age: 67 Year

DRUGS (1)
  1. SOMATROPIN [Suspect]
     Active Substance: SOMATROPIN
     Indication: Growth hormone deficiency
     Dosage: MEAN GH STARTING DOSE WAS 0.16 MG, 0.32 MG, AND 0.21 MG
     Route: 065

REACTIONS (1)
  - Alcohol abuse [Fatal]
